FAERS Safety Report 4686899-2 (Version None)
Quarter: 2005Q2

REPORT INFORMATION
  Report Type: 
  Country: None (occurrence: None)
  Receive Date: 20050608
  Receipt Date: 20050527
  Transmission Date: 20051028
  Serious: Yes (Hospitalization, Other)
  Sender: FDA-Public Use
  Company Number: 2005081329

PATIENT
  Age: 73 Year
  Sex: Male
  Weight: 73 kg

DRUGS (7)
  1. TAHOR (ATORVASTATIN) [Suspect]
     Indication: HYPERCHOLESTEROLAEMIA
     Dosage: 40 MG (1 IN 1 D) ORAL
     Route: 048
     Dates: start: 19990101, end: 20050225
  2. PIROXICAM [Suspect]
     Indication: SCIATICA
     Dates: start: 20050410
  3. PIROXICAM BETADEX (PIROXICAM BETADEX) [Suspect]
     Indication: SCIATICA
     Dates: start: 20050410
  4. PREVISCAN (FLUINDIONE) [Suspect]
     Indication: ILL-DEFINED DISORDER
  5. JOSIR (TAMSULOSIN HYDROCHLORIDE) [Suspect]
     Indication: ILL-DEFINED DISORDER
  6. COUMADIN [Suspect]
     Indication: ILL-DEFINED DISORDER
     Dates: start: 20031201
  7. FOLIC ACID [Concomitant]

REACTIONS (12)
  - DRUG HYPERSENSITIVITY [None]
  - DYSPEPSIA [None]
  - ECZEMA [None]
  - EOSINOPHILIA [None]
  - HAEMORRHAGIC STROKE [None]
  - LIVER DISORDER [None]
  - PANCREATIC INSUFFICIENCY [None]
  - PRURITUS [None]
  - PULMONARY EMBOLISM [None]
  - RASH [None]
  - SCIATICA [None]
  - URTICARIA [None]
